FAERS Safety Report 7729540-4 (Version None)
Quarter: 2011Q3

REPORT INFORMATION
  Report Type: 
  Country: None (occurrence: None)
  Receive Date: 20110906
  Receipt Date: 20110819
  Transmission Date: 20111222
  Serious: Yes (Hospitalization)
  Sender: FDA-Public Use
  Company Number: PHHO2011US12436

PATIENT
  Sex: Female
  Weight: 79.3 kg

DRUGS (20)
  1. BLINDED PLACEBO [Suspect]
     Indication: CARDIOVASCULAR DISORDER
     Dosage: CODE NOT BROKEN
     Route: 048
     Dates: start: 20090610, end: 20110722
  2. AVAPRO [Concomitant]
     Dosage: 75 MG, QD
     Route: 048
  3. NIACIN [Concomitant]
     Dosage: 1000 MG, QD
  4. BLINDED NO TREATMENT RECEIVED [Suspect]
     Indication: CARDIOVASCULAR DISORDER
     Dosage: CODE NOT BROKEN
     Route: 048
     Dates: start: 20090610, end: 20110722
  5. CYCLOBENZAPRINE [Suspect]
     Dosage: 10 MG, QHS
     Route: 048
  6. CENTRUM SILVER [Concomitant]
     Dosage: 1 DF (TAB), QD
     Route: 048
  7. LOVASTATIN [Concomitant]
     Dosage: 40 MG, QD
     Route: 048
  8. PRILOSEC [Concomitant]
     Dosage: 20 MG, QD
     Route: 048
  9. FLUTICASONE PROPIONATE [Concomitant]
     Dosage: 25 DF (5 UG / SPRAY), EACH NOSTRIL, QD
  10. COLACE [Concomitant]
     Dosage: 100 MG, QD
     Route: 048
  11. DILTIAZEM [Suspect]
     Indication: HYPERTENSION
     Dosage: 180 MG, QD
     Route: 048
     Dates: end: 20110801
  12. NOVOLOG [Suspect]
     Indication: TYPE 2 DIABETES MELLITUS
     Dosage: 46 IU, BID
     Route: 058
     Dates: end: 20110801
  13. GLUCOSAMINE W/CHONDROITIN [Concomitant]
     Route: 048
  14. LEVOTHYROXINE SODIUM [Concomitant]
     Dosage: 50 UG, QD
     Route: 048
  15. IRBESARTAN [Suspect]
     Indication: HYPERTENSION
     Dosage: 75 MG, Q5W
     Dates: end: 20110801
  16. CYCLOBENZAPRINE [Suspect]
     Indication: MUSCLE SPASMS
     Dosage: 20 MG, QHS
     Route: 048
     Dates: end: 20110801
  17. LANTUS [Suspect]
     Indication: TYPE 2 DIABETES MELLITUS
     Dosage: 45 IU, QD
     Route: 058
     Dates: end: 20110801
  18. NAPROXEN [Concomitant]
     Dosage: 500 MG, BID
     Route: 048
  19. HYDROCHLOROTHIAZIDE [Suspect]
     Indication: HYPERTENSION
     Dosage: 25 MG, QD
     Route: 048
     Dates: end: 20110801
  20. BLINDED ALISKIREN [Suspect]
     Indication: CARDIOVASCULAR DISORDER
     Dosage: CODE NOT BROKEN
     Route: 048
     Dates: start: 20090610, end: 20110722

REACTIONS (3)
  - SYNCOPE [None]
  - FIBULA FRACTURE [None]
  - DISEASE PROGRESSION [None]
